FAERS Safety Report 5227790-2 (Version None)
Quarter: 2007Q1

REPORT INFORMATION
  Report Type: 
  Country: None (occurrence: None)
  Receive Date: 20070202
  Receipt Date: 20070102
  Transmission Date: 20070707
  Serious: Yes (Other)
  Sender: FDA-Public Use
  Company Number: US-PFIZER INC-2007000453

PATIENT
  Sex: Female
  Weight: 95.3 kg

DRUGS (2)
  1. BEXTRA [Suspect]
     Indication: ARTHRITIS
     Route: 048
     Dates: start: 20030401, end: 20040101
  2. BEXTRA [Suspect]
     Indication: ARTHRALGIA

REACTIONS (1)
  - RETINAL VASCULAR OCCLUSION [None]
